FAERS Safety Report 25130501 (Version 2)
Quarter: 2025Q2

REPORT INFORMATION
  Report Type: Spontaneous
  Country: GB (occurrence: GB)
  Receive Date: 20250327
  Receipt Date: 20250528
  Transmission Date: 20250716
  Serious: Yes (Other)
  Sender: NOVARTIS
  Company Number: GB-002147023-NVSC2025GB037133

PATIENT
  Age: 45 Year
  Sex: Female
  Weight: 118 kg

DRUGS (3)
  1. INCLISIRAN [Suspect]
     Active Substance: INCLISIRAN
     Indication: Cerebrovascular accident
     Route: 058
     Dates: start: 20240223
  2. INCLISIRAN [Suspect]
     Active Substance: INCLISIRAN
     Indication: Lipids increased
     Route: 065
     Dates: start: 202405
  3. WARFARIN [Concomitant]
     Active Substance: WARFARIN
     Indication: Pulmonary embolism
     Route: 065

REACTIONS (2)
  - International normalised ratio abnormal [Not Recovered/Not Resolved]
  - Off label use [Unknown]

NARRATIVE: CASE EVENT DATE: 20240514
